FAERS Safety Report 12942160 (Version 5)
Quarter: 2017Q2

REPORT INFORMATION
  Report Type: Report from Study
  Country: US (occurrence: US)
  Receive Date: 20161114
  Receipt Date: 20170406
  Transmission Date: 20170830
  Serious: Yes (Life-Threatening, Hospitalization)
  Sender: FDA-Public Use
  Company Number: US-ASTRAZENECA-2016SF09129

PATIENT
  Age: 23902 Day
  Sex: Female
  Weight: 52.5 kg

DRUGS (14)
  1. MOMETASONE [Concomitant]
     Active Substance: MOMETASONE
     Indication: RHINITIS
     Route: 045
     Dates: start: 2013
  2. DONEPEZIL. [Concomitant]
     Active Substance: DONEPEZIL
     Indication: AMNESIA
     Dosage: ONGOING
     Route: 048
     Dates: start: 2015
  3. GABAPENTIN. [Concomitant]
     Active Substance: GABAPENTIN
     Indication: DIABETIC NEUROPATHY
     Route: 048
     Dates: start: 2014
  4. HYDROCHLOROTHIAZIDE. [Concomitant]
     Active Substance: HYDROCHLOROTHIAZIDE
     Indication: HYPERTENSION
     Route: 048
     Dates: start: 2014
  5. VENTOLIN HFA [Concomitant]
     Active Substance: ALBUTEROL SULFATE
     Indication: CHRONIC OBSTRUCTIVE PULMONARY DISEASE
     Dosage: AS NEEDED, ONGOING
     Route: 055
     Dates: start: 20160609
  6. BUDESONIDE + FORMOTEROL FUMARATE + GLYCOPYRRONIUM CODE NOT BROKEN (... [Suspect]
     Active Substance: BUDESONIDE\FORMOTEROL\GLYCOPYRRONIUM
     Indication: CHRONIC OBSTRUCTIVE PULMONARY DISEASE
     Route: 055
     Dates: start: 20160928
  7. VITAMIN D [Concomitant]
     Active Substance: CHOLECALCIFEROL
     Indication: VITAMIN D DEFICIENCY
     Route: 048
     Dates: start: 2014
  8. VOLTAREN 1% [Concomitant]
     Indication: OSTEOARTHRITIS
     Dosage: 1.0G AS REQUIRED
     Route: 061
     Dates: start: 2014
  9. FLUTICASONE. [Concomitant]
     Active Substance: FLUTICASONE
     Indication: CHRONIC OBSTRUCTIVE PULMONARY DISEASE
     Route: 055
     Dates: start: 20160610, end: 20160627
  10. HUMULIN 70/30 [Concomitant]
     Active Substance: INSULIN HUMAN
     Indication: TYPE 2 DIABETES MELLITUS
     Route: 058
     Dates: start: 2013
  11. DIOVAN [Concomitant]
     Active Substance: VALSARTAN
     Indication: HYPERTENSION
     Route: 048
     Dates: start: 201606
  12. NEXIUM [Concomitant]
     Active Substance: ESOMEPRAZOLE MAGNESIUM
     Indication: GASTROOESOPHAGEAL REFLUX DISEASE
     Route: 048
     Dates: start: 2012
  13. BUDESONIDE + FORMOTEROL FUMARATE + GLYCOPYRRONIUM CODE NOT BROKEN (... [Suspect]
     Active Substance: BUDESONIDE\FORMOTEROL\GLYCOPYRRONIUM
     Indication: CHRONIC OBSTRUCTIVE PULMONARY DISEASE
     Route: 055
     Dates: start: 20160627, end: 20160922
  14. DOXEPIN [Concomitant]
     Active Substance: DOXEPIN
     Indication: DEPRESSION
     Route: 048
     Dates: start: 2015

REACTIONS (8)
  - Electrocardiogram ST segment depression [None]
  - Atelectasis [None]
  - Pleural effusion [None]
  - Atrial flutter [None]
  - Respiratory failure [Recovered/Resolved]
  - Tachycardia [None]
  - Sinus tachycardia [None]
  - Chronic obstructive pulmonary disease [None]

NARRATIVE: CASE EVENT DATE: 20160922
